FAERS Safety Report 6545658-6 (Version None)
Quarter: 2010Q1

REPORT INFORMATION
  Report Type: 
  Country: None (occurrence: None)
  Receive Date: 20100121
  Receipt Date: 20100111
  Transmission Date: 20100710
  Serious: Yes (Hospitalization, Other)
  Sender: FDA-Public Use
  Company Number: PHEH2009US18043

PATIENT
  Sex: Female
  Weight: 66.213 kg

DRUGS (9)
  1. SANDOSTATIN LAR [Suspect]
     Dosage: 30 MG, QMO
     Route: 030
  2. GLIPIZIDE [Concomitant]
     Dosage: 5 MG, BID
     Route: 048
  3. ENALAPRIL MALEATE [Concomitant]
     Dosage: 10 MG, QD
     Route: 048
  4. LANTUS [Concomitant]
     Dosage: SLIDING SCALE PRN
     Route: 058
  5. HUMALOG [Concomitant]
     Dosage: SLIDING SCALE PRN
     Route: 058
  6. SOMAVERT [Concomitant]
     Dosage: 15 MG, TID
     Route: 058
  7. LOMOTIL [Concomitant]
     Dosage: 1 TAB PRN
     Route: 048
  8. MECLIZINE [Concomitant]
     Dosage: 12.5 MG, PRN
     Route: 048
  9. GLUCOPHAGE [Concomitant]
     Dosage: 1000 MG, QD
     Route: 048

REACTIONS (3)
  - FALL [None]
  - HIP ARTHROPLASTY [None]
  - HIP FRACTURE [None]
